FAERS Safety Report 7374617-9 (Version None)
Quarter: 2011Q1

REPORT INFORMATION
  Report Type: 
  Country: None (occurrence: None)
  Receive Date: 20110325
  Receipt Date: 20100615
  Transmission Date: 20110831
  Serious: No
  Sender: FDA-Public Use
  Company Number: US-MYLANLABS-2010S1008352

PATIENT
  Age: 36 Year
  Sex: Female

DRUGS (3)
  1. FENTANYL-100 [Suspect]
     Indication: HEADACHE
     Dosage: Q3D
     Route: 062
     Dates: start: 20100301
  2. CYMBALTA [Concomitant]
     Indication: DEPRESSION
     Route: 048
  3. ROXICODONE [Concomitant]

REACTIONS (3)
  - DRUG EFFECT DECREASED [None]
  - WITHDRAWAL SYNDROME [None]
  - HEADACHE [None]
